FAERS Safety Report 8895643 (Version 1)
Quarter: 2012Q4

REPORT INFORMATION
  Report Type: 
  Country: ES (occurrence: ES)
  Receive Date: 20121108
  Receipt Date: 20121108
  Transmission Date: 20130627
  Serious: Yes (Hospitalization)
  Sender: FDA-Public Use
  Company Number: ES-PFIZER INC-2012277529

PATIENT
  Age: 62 Year
  Sex: Female

DRUGS (1)
  1. MORPHINE SULFATE [Suspect]
     Dosage: 100 mg Daily
     Route: 048
     Dates: start: 20120507, end: 20120509

REACTIONS (8)
  - Overdose [Unknown]
  - Apnoeic attack [Recovering/Resolving]
  - Delirium [Recovering/Resolving]
  - Aphagia [Recovering/Resolving]
  - Incorrect dose administered [Unknown]
  - Somnolence [Recovering/Resolving]
  - Restlessness [Recovering/Resolving]
  - Drug dispensing error [Unknown]
